FAERS Safety Report 19312990 (Version 1)
Quarter: 2021Q2

REPORT INFORMATION
  Report Type: Spontaneous
  Country: US (occurrence: US)
  Receive Date: 20210526
  Receipt Date: 20210526
  Transmission Date: 20210717
  Serious: Yes (Disabling)
  Sender: FDA-Public Use
  Company Number: None

PATIENT
  Age: 38 Year
  Sex: Male
  Weight: 67.5 kg

DRUGS (1)
  1. OXYCODONE HYDROCHLORIDE. [Suspect]
     Active Substance: OXYCODONE HYDROCHLORIDE
     Indication: BREAKTHROUGH PAIN
     Route: 048

REACTIONS (7)
  - Hypersensitivity [None]
  - Fatigue [None]
  - Manufacturing issue [None]
  - Pharyngeal swelling [None]
  - Hyperhidrosis [None]
  - Pyrexia [None]
  - Withdrawal syndrome [None]

NARRATIVE: CASE EVENT DATE: 20210430
